FAERS Safety Report 6921216-6 (Version None)
Quarter: 2010Q3

REPORT INFORMATION
  Report Type: 
  Country: None (occurrence: None)
  Receive Date: 20100812
  Receipt Date: 20100806
  Transmission Date: 20110219
  Serious: Yes (Hospitalization)
  Sender: FDA-Public Use
  Company Number: A0867407A

PATIENT
  Age: 37 Year
  Sex: Female

DRUGS (3)
  1. LAMOTRIGINE [Suspect]
     Indication: BIPOLAR DISORDER
     Dosage: 200MG PER DAY
     Route: 048
  2. SYNTHROID [Concomitant]
  3. CELEXA [Concomitant]

REACTIONS (3)
  - AFFECT LABILITY [None]
  - DRUG INEFFECTIVE [None]
  - ELECTROCONVULSIVE THERAPY [None]
